FAERS Safety Report 4581480-8 (Version None)
Quarter: 2005Q1

REPORT INFORMATION
  Report Type: 
  Country: None (occurrence: None)
  Receive Date: 20050214
  Receipt Date: 20041101
  Transmission Date: 20050727
  Serious: Yes (Hospitalization)
  Sender: FDA-Public Use
  Company Number: US-GLAXOSMITHKLINE-A0532027A

PATIENT
  Age: 18 Year
  Sex: Male

DRUGS (4)
  1. LAMICTAL [Suspect]
     Indication: BIPOLAR DISORDER
     Route: 048
     Dates: start: 20040430, end: 20041027
  2. RITALIN [Concomitant]
  3. RISPERDAL [Concomitant]
  4. XANAX [Concomitant]

REACTIONS (1)
  - HEAT RASH [None]
